FAERS Safety Report 16877667 (Version 2)
Quarter: 2019Q4

REPORT INFORMATION
  Report Type: Spontaneous
  Country: US (occurrence: US)
  Receive Date: 20191002
  Receipt Date: 20191022
  Transmission Date: 20200122
  Serious: No
  Sender: FDA-Public Use
  Company Number: US-009507513-1909USA008024

PATIENT
  Age: 29 Year
  Sex: Female
  Weight: 62.13 kg

DRUGS (1)
  1. NEXPLANON [Suspect]
     Active Substance: ETONOGESTREL
     Dosage: 1 IMPLANT, 68 MG
     Dates: start: 201903

REACTIONS (2)
  - Device kink [Unknown]
  - Device breakage [Unknown]

NARRATIVE: CASE EVENT DATE: 20190918
